FAERS Safety Report 4520739-7 (Version None)
Quarter: 2004Q4

REPORT INFORMATION
  Report Type: 
  Country: None (occurrence: None)
  Receive Date: 20041203
  Receipt Date: 20041022
  Transmission Date: 20050328
  Serious: Yes (Hospitalization)
  Sender: FDA-Public Use
  Company Number: STA-AE-04-MTX-514

PATIENT
  Age: 41 Year
  Sex: Female

DRUGS (13)
  1. RHEUMATREX [Suspect]
     Indication: RHEUMATOID ARTHRITIS
     Dosage: SEE IMAGE
     Route: 048
     Dates: start: 20030805, end: 20030831
  2. RHEUMATREX [Suspect]
     Indication: RHEUMATOID ARTHRITIS
     Dosage: SEE IMAGE
     Route: 048
     Dates: start: 20030901, end: 20040224
  3. RHEUMATREX [Suspect]
     Indication: RHEUMATOID ARTHRITIS
     Dosage: SEE IMAGE
     Route: 048
     Dates: start: 20040301, end: 20040301
  4. PREDNISOLONE [Suspect]
     Indication: RHEUMATOID ARTHRITIS
     Dosage: 12.5 MG 1X PER 1 DAY, ORAL
     Route: 048
     Dates: start: 20031206
  5. REMICADE [Suspect]
     Indication: RHEUMATOID ARTHRITIS
     Dosage: 3 MG/KG/DAY, INTRAVENOUS
     Route: 042
     Dates: start: 20031206, end: 20031206
  6. REMICADE [Suspect]
     Indication: RHEUMATOID ARTHRITIS
     Dosage: 3 MG/KG/DAY, INTRAVENOUS
     Route: 042
     Dates: start: 20031222, end: 20031222
  7. REMICADE [Suspect]
     Indication: RHEUMATOID ARTHRITIS
     Dosage: 3 MG/KG/DAY, INTRAVENOUS
     Route: 042
     Dates: start: 20040119, end: 20040119
  8. VOLTAREN [Concomitant]
  9. FOLIC ACID [Concomitant]
  10. GASTER (FAMOTIDINE) [Concomitant]
  11. MARZULENE (SODIUM GUALENATE) [Concomitant]
  12. ALFAROL (ALFACALCIDOL) [Concomitant]
  13. RISEDRONATE SODIUM [Concomitant]

REACTIONS (6)
  - BRONCHIECTASIS [None]
  - CHEST X-RAY ABNORMAL [None]
  - HYPOXIA [None]
  - PHARYNGOLARYNGEAL PAIN [None]
  - RALES [None]
  - UPPER RESPIRATORY TRACT INFLAMMATION [None]
